FAERS Safety Report 4603010-4 (Version None)
Quarter: 2005Q1

REPORT INFORMATION
  Report Type: 
  Country: None (occurrence: None)
  Receive Date: 20050309
  Receipt Date: 20050301
  Transmission Date: 20050727
  Serious: Yes (Hospitalization)
  Sender: FDA-Public Use
  Company Number: US-ROCHE-397323

PATIENT
  Age: 41 Year
  Sex: Female
  Weight: 72.6 kg

DRUGS (2)
  1. TAMIFLU [Suspect]
     Indication: INFLUENZA
     Route: 048
     Dates: start: 20050222
  2. FEMRING [Concomitant]
     Indication: HORMONE REPLACEMENT THERAPY
     Dosage: DRUG NAME: REPORTED AS FEMRING VAGINAL RING
     Route: 067

REACTIONS (1)
  - HYPERSENSITIVITY [None]
